FAERS Safety Report 5715336-1 (Version None)
Quarter: 2008Q2

REPORT INFORMATION
  Report Type: 
  Country: None (occurrence: None)
  Receive Date: 20080423
  Receipt Date: 20080414
  Transmission Date: 20081010
  Serious: Yes (Hospitalization)
  Sender: FDA-Public Use
  Company Number: US-MERCK-0705USA05334

PATIENT
  Age: 42 Year
  Sex: Female

DRUGS (3)
  1. FOSAMAX [Suspect]
     Indication: OSTEOPOROSIS
     Route: 048
     Dates: start: 19960101, end: 20060501
  2. PREDNISONE [Concomitant]
     Indication: ASTHMA
     Route: 065
     Dates: start: 19700101
  3. ALBUTEROL [Concomitant]
     Indication: ASTHMA
     Route: 065
     Dates: start: 19700101

REACTIONS (10)
  - ANXIETY [None]
  - DEPRESSION [None]
  - HYPOAESTHESIA [None]
  - JAW DISORDER [None]
  - PAIN IN JAW [None]
  - ROAD TRAFFIC ACCIDENT [None]
  - SWELLING [None]
  - TEMPOROMANDIBULAR JOINT SYNDROME [None]
  - TRISMUS [None]
  - UTERINE DISORDER [None]
